FAERS Safety Report 4467527-8 (Version None)
Quarter: 2004Q3

REPORT INFORMATION
  Report Type: 
  Country: None (occurrence: None)
  Receive Date: 20040917
  Receipt Date: 20040812
  Transmission Date: 20050211
  Serious: No
  Sender: FDA-Public Use
  Company Number: US-JNJFOC-20040804316

PATIENT
  Age: 26 Year
  Sex: Female
  Weight: 40.8237 kg

DRUGS (1)
  1. ORTHO EVRA [Suspect]
     Indication: CONTRACEPTION
     Dosage: 1 DOSE(S), 3 IN 4 WEEK, TRANSDERMAL
     Route: 062
     Dates: start: 20040812

REACTIONS (3)
  - DIZZINESS [None]
  - FEELING HOT [None]
  - NAUSEA [None]
